FAERS Safety Report 18577917 (Version 1)
Quarter: 2020Q4

REPORT INFORMATION
  Report Type: Other
  Country: JP (occurrence: JP)
  Receive Date: 20201204
  Receipt Date: 20201204
  Transmission Date: 20210114
  Serious: Yes (Other)
  Sender: FDA-Public Use
  Company Number: JP-ROCHE-2723693

PATIENT
  Age: 3 Month
  Sex: Female

DRUGS (1)
  1. ZELBORAF [Suspect]
     Active Substance: VEMURAFENIB
     Indication: LANGERHANS^ CELL HISTIOCYTOSIS
     Route: 048

REACTIONS (5)
  - Rash [Unknown]
  - Blood thyroid stimulating hormone increased [Unknown]
  - Lymphocyte count decreased [Recovering/Resolving]
  - Off label use [Unknown]
  - Intentional product use issue [Unknown]
